FAERS Safety Report 4514321-5 (Version None)
Quarter: 2004Q4

REPORT INFORMATION
  Report Type: 
  Country: None (occurrence: None)
  Receive Date: 20040928
  Receipt Date: 20040707
  Transmission Date: 20050328
  Serious: No
  Sender: FDA-Public Use
  Company Number: 04P-163-0266123-00

PATIENT
  Age: 69 Year
  Sex: Female
  Weight: 48.0813 kg

DRUGS (12)
  1. HUMIRA [Suspect]
     Indication: RHEUMATOID ARTHRITIS
     Dosage: 40 MG, 1 IN 2 WK, SUBCUTANEOUS
     Route: 058
     Dates: start: 20040607
  2. PREDNISONE [Concomitant]
  3. CARBAMAZEPINE [Concomitant]
  4. SALSALATE [Concomitant]
  5. LOTREL [Concomitant]
  6. DOXAZOSIN MESYLATE [Concomitant]
  7. CONJUGATED ESTROGEN [Concomitant]
  8. METHOTREXATE [Concomitant]
  9. FOLIC ACID [Concomitant]
  10. ALENDRONATE SODIUM [Concomitant]
  11. ROFECOXIB [Concomitant]
  12. LEVOTHYROXINE SODIUM [Concomitant]

REACTIONS (1)
  - COUGH [None]
